FAERS Safety Report 4672401-8 (Version None)
Quarter: 2005Q2

REPORT INFORMATION
  Report Type: 
  Country: None (occurrence: None)
  Receive Date: 20050524
  Receipt Date: 20050512
  Transmission Date: 20051028
  Serious: Yes (Hospitalization)
  Sender: FDA-Public Use
  Company Number: US-JNJFOC-20050503613

PATIENT
  Sex: Female

DRUGS (14)
  1. REMICADE [Suspect]
     Indication: DRUG USE FOR UNKNOWN INDICATION
     Route: 042
  2. PENTASA [Concomitant]
  3. ZOLOFT [Concomitant]
  4. ALLOPURINOL [Concomitant]
  5. DURAGESIC-100 [Concomitant]
  6. TOPAMAX [Concomitant]
  7. TRAZEDONE [Concomitant]
  8. DIFLUCAN [Concomitant]
  9. LASIX [Concomitant]
  10. POTASSIUM CHLORIDE [Concomitant]
  11. MAGNESIUM [Concomitant]
  12. MIDRIN [Concomitant]
  13. MIDRIN [Concomitant]
  14. MIDRIN [Concomitant]

REACTIONS (3)
  - DYSPNOEA [None]
  - HAEMATEMESIS [None]
  - SWELLING [None]
